FAERS Safety Report 9170462 (Version 2)
Quarter: 2013Q3

REPORT INFORMATION
  Report Type: Spontaneous
  Country: US (occurrence: None)
  Receive Date: 20130307
  Receipt Date: 20130820
  Transmission Date: 20140515
  Serious: Yes (Hospitalization, Disabling)
  Sender: FDA-Public Use
  Company Number: 2013SGN00100

PATIENT
  Age: 29 Year
  Sex: Female
  Weight: 52.5 kg

DRUGS (8)
  1. BRENTUXIMAB VEDOLIN [Suspect]
     Indication: HODGKIN^S DISEASE
     Route: 042
     Dates: start: 20120615, end: 20121130
  2. ATIVAN (LORAZEPAM) [Concomitant]
  3. BACTRIM [Concomitant]
  4. CYMBALTA (DULOXETINE HYDROCHLORIDE) [Concomitant]
  5. LOESTRIN FE (ETHINYLESTRADIOL, FERROUS FUMARATE, NORETHISTERONE ACETATE) [Concomitant]
  6. PROTONIX (PANTOPRAZOLE SODIUM) [Concomitant]
  7. VALTREX (VALACICLOVIR HYDROCHLORIDE) [Concomitant]
  8. VITAMIN D (VITAMIN D) [Concomitant]

REACTIONS (12)
  - Myelitis [None]
  - Urinary retention [None]
  - Peripheral sensory neuropathy [None]
  - Constipation [None]
  - Fall [None]
  - Urinary hesitation [None]
  - Gastrointestinal motility disorder [None]
  - Cognitive disorder [None]
  - Weight decreased [None]
  - Fatigue [None]
  - Grip strength decreased [None]
  - Urinary tract infection [None]
